FAERS Safety Report 25437370 (Version 1)
Quarter: 2025Q2

REPORT INFORMATION
  Report Type: Spontaneous
  Country: CA (occurrence: CA)
  Receive Date: 20250616
  Receipt Date: 20250616
  Transmission Date: 20250716
  Serious: Yes (Death, Life-Threatening, Hospitalization, Disabling, Congenital Anomaly, Other)
  Sender: Haleon PLC
  Company Number: CA-002147023-NVSC2025CA092605

PATIENT
  Age: 43 Year
  Sex: Female
  Weight: 96 kg

DRUGS (64)
  1. DICLOFENAC POTASSIUM [Suspect]
     Active Substance: DICLOFENAC POTASSIUM
     Indication: Product used for unknown indication
  2. SULFASALAZINE [Concomitant]
     Active Substance: SULFASALAZINE
     Indication: Product used for unknown indication
  3. QUETIAPINE FUMARATE [Concomitant]
     Active Substance: QUETIAPINE FUMARATE
     Indication: Product used for unknown indication
  4. METHOTREXATE [Suspect]
     Active Substance: METHOTREXATE
     Indication: Rheumatoid arthritis
     Route: 048
  5. METHOTREXATE [Suspect]
     Active Substance: METHOTREXATE
     Route: 048
  6. METHOTREXATE [Suspect]
     Active Substance: METHOTREXATE
     Route: 048
  7. METHOTREXATE [Suspect]
     Active Substance: METHOTREXATE
     Route: 048
  8. METHOTREXATE [Suspect]
     Active Substance: METHOTREXATE
     Dosage: 15 MG, QD
     Route: 048
  9. METHOTREXATE [Suspect]
     Active Substance: METHOTREXATE
     Route: 048
  10. METHOTREXATE [Suspect]
     Active Substance: METHOTREXATE
     Dosage: 20 MG, QD
     Route: 048
  11. METHOTREXATE [Suspect]
     Active Substance: METHOTREXATE
     Route: 048
  12. METHOTREXATE [Suspect]
     Active Substance: METHOTREXATE
     Route: 048
  13. METHOTREXATE [Suspect]
     Active Substance: METHOTREXATE
     Route: 048
  14. METHOTREXATE [Suspect]
     Active Substance: METHOTREXATE
     Route: 050
  15. METHOTREXATE [Suspect]
     Active Substance: METHOTREXATE
     Route: 050
  16. METHOTREXATE [Suspect]
     Active Substance: METHOTREXATE
     Route: 050
  17. METHOTREXATE [Suspect]
     Active Substance: METHOTREXATE
     Route: 050
  18. ADALIMUMAB [Suspect]
     Active Substance: ADALIMUMAB
     Indication: Rheumatoid arthritis
     Route: 058
  19. ADALIMUMAB [Suspect]
     Active Substance: ADALIMUMAB
     Route: 058
  20. PREDNISONE [Suspect]
     Active Substance: PREDNISONE
     Indication: Rheumatoid arthritis
  21. SULFASALAZINE [Suspect]
     Active Substance: SULFASALAZINE
     Indication: Rheumatoid arthritis
  22. ORENCIA [Suspect]
     Active Substance: ABATACEPT
     Indication: Rheumatoid arthritis
  23. PHTHALYLSULFATHIAZOLE [Suspect]
     Active Substance: PHTHALYLSULFATHIAZOLE
     Indication: Rheumatoid arthritis
  24. PHTHALYLSULFATHIAZOLE [Suspect]
     Active Substance: PHTHALYLSULFATHIAZOLE
  25. ERELZI [Suspect]
     Active Substance: ETANERCEPT-SZZS
     Indication: Rheumatoid arthritis
     Route: 058
  26. RAMIPRIL [Suspect]
     Active Substance: RAMIPRIL
     Indication: Rheumatoid arthritis
     Route: 016
  27. LORAZEPAM [Concomitant]
     Active Substance: LORAZEPAM
     Indication: Product used for unknown indication
  28. HYDROXYCHLOROQUINE SULFATE [Suspect]
     Active Substance: HYDROXYCHLOROQUINE SULFATE
     Indication: Rheumatoid arthritis
     Dosage: 40 MG, QD
  29. CANDESARTAN [Suspect]
     Active Substance: CANDESARTAN
     Indication: Migraine
     Route: 048
  30. OXYCODONE [Suspect]
     Active Substance: OXYCODONE
     Indication: Product used for unknown indication
  31. OXYCODONE [Suspect]
     Active Substance: OXYCODONE
  32. TOPIRAMATE [Suspect]
     Active Substance: TOPIRAMATE
     Indication: Migraine
     Dosage: 3 MG, QD
  33. LAMICTAL [Suspect]
     Active Substance: LAMOTRIGINE
     Indication: Product used for unknown indication
     Route: 048
  34. ALENDRONIC ACID [Suspect]
     Active Substance: ALENDRONIC ACID
     Indication: Rheumatoid arthritis
     Route: 048
  35. MAGNESIUM [Suspect]
     Active Substance: MAGNESIUM
     Indication: Product used for unknown indication
  36. PSEUDOEPHEDRINE HYDROCHLORIDE [Suspect]
     Active Substance: PSEUDOEPHEDRINE HYDROCHLORIDE
     Indication: Product used for unknown indication
  37. COSENTYX [Suspect]
     Active Substance: SECUKINUMAB
     Indication: Rheumatoid arthritis
  38. MYRBETRIQ [Suspect]
     Active Substance: MIRABEGRON
     Indication: Product used for unknown indication
     Dosage: 1 DOSAGE FORM, QD
  39. PANTOPRAZOLE SODIUM [Concomitant]
     Active Substance: PANTOPRAZOLE SODIUM
     Indication: Product used for unknown indication
  40. AIMOVIG [Suspect]
     Active Substance: ERENUMAB-AOOE
     Indication: Migraine
  41. PREDNISOLONE [Concomitant]
     Active Substance: PREDNISOLONE
     Indication: Product used for unknown indication
  42. NUCALA [Suspect]
     Active Substance: MEPOLIZUMAB
     Indication: Product used for unknown indication
  43. TRAMADOL HYDROCHLORIDE [Suspect]
     Active Substance: TRAMADOL HYDROCHLORIDE
     Indication: Product used for unknown indication
  44. METHYLPREDNISOLONE SODIUM SUCCINATE [Suspect]
     Active Substance: METHYLPREDNISOLONE SODIUM SUCCINATE
     Indication: Product used for unknown indication
  45. INFLIXIMAB [Suspect]
     Active Substance: INFLIXIMAB
     Indication: Rheumatoid arthritis
     Route: 042
  46. MEGLUMINE [Suspect]
     Active Substance: MEGLUMINE
     Indication: Migraine
  47. DICLOFENAC SODIUM [Suspect]
     Active Substance: DICLOFENAC SODIUM
     Indication: Product used for unknown indication
  48. TOFACITINIB CITRATE [Suspect]
     Active Substance: TOFACITINIB CITRATE
     Indication: Product used for unknown indication
     Dosage: 0.5 MG, QD
  49. ISOPROPYL ALCOHOL [Suspect]
     Active Substance: ISOPROPYL ALCOHOL
     Indication: Product used for unknown indication
  50. LISINOPRIL [Concomitant]
     Active Substance: LISINOPRIL
     Indication: Product used for unknown indication
  51. RISEDRONATE SODIUM [Concomitant]
     Active Substance: RISEDRONATE SODIUM
     Indication: Product used for unknown indication
  52. RITUXIMAB [Suspect]
     Active Substance: RITUXIMAB
     Indication: Rheumatoid arthritis
  53. RITUXIMAB [Suspect]
     Active Substance: RITUXIMAB
  54. GOLD SODIUM THIOMALATE [Suspect]
     Active Substance: GOLD SODIUM THIOMALATE
     Indication: Product used for unknown indication
  55. TOFACITINIB [Suspect]
     Active Substance: TOFACITINIB
     Indication: Rheumatoid arthritis
     Dosage: 5 MG, QD
  56. TOFACITINIB [Suspect]
     Active Substance: TOFACITINIB
  57. NAPROXEN SODIUM [Suspect]
     Active Substance: NAPROXEN SODIUM
     Indication: Rheumatoid arthritis
  58. DOCONEXENT [Concomitant]
     Active Substance: DOCONEXENT
     Indication: Product used for unknown indication
  59. NAPROXEN [Suspect]
     Active Substance: NAPROXEN
     Indication: Product used for unknown indication
  60. TRIAMCINOLONE ACETONIDE [Suspect]
     Active Substance: TRIAMCINOLONE ACETONIDE
     Indication: Rheumatoid arthritis
     Route: 014
  61. DIETARY SUPPLEMENT\HERBALS [Suspect]
     Active Substance: DIETARY SUPPLEMENT\HERBALS
     Indication: Product used for unknown indication
  62. SIMPONI [Suspect]
     Active Substance: GOLIMUMAB
     Indication: Rheumatoid arthritis
     Route: 058
  63. SIMPONI [Suspect]
     Active Substance: GOLIMUMAB
     Indication: Prostatic specific antigen
     Route: 058
  64. RANITIDINE HYDROCHLORIDE [Suspect]
     Active Substance: RANITIDINE HYDROCHLORIDE
     Indication: Product used for unknown indication

REACTIONS (42)
  - Systemic lupus erythematosus [Fatal]
  - Wheezing [Fatal]
  - Type 2 diabetes mellitus [Fatal]
  - Pericarditis [Fatal]
  - Wound [Fatal]
  - Rheumatoid arthritis [Fatal]
  - Osteoarthritis [Fatal]
  - Maternal exposure during pregnancy [Fatal]
  - Urticaria [Fatal]
  - Joint range of motion decreased [Fatal]
  - Musculoskeletal pain [Fatal]
  - Memory impairment [Fatal]
  - Lip dry [Fatal]
  - Migraine [Fatal]
  - Muscle spasms [Fatal]
  - Rash [Fatal]
  - Lung disorder [Fatal]
  - Lower respiratory tract infection [Fatal]
  - Liver injury [Fatal]
  - Peripheral swelling [Fatal]
  - Taste disorder [Fatal]
  - Joint swelling [Fatal]
  - Weight increased [Fatal]
  - Nail disorder [Fatal]
  - Obesity [Fatal]
  - Nasopharyngitis [Fatal]
  - Pemphigus [Fatal]
  - Peripheral venous disease [Fatal]
  - Night sweats [Fatal]
  - Paraesthesia [Fatal]
  - Stomatitis [Fatal]
  - Psoriatic arthropathy [Fatal]
  - Product use in unapproved indication [Fatal]
  - Vomiting [Fatal]
  - Swelling [Fatal]
  - Product quality issue [Fatal]
  - Wound infection [Fatal]
  - Off label use [Fatal]
  - Synovitis [Fatal]
  - Irritable bowel syndrome [Fatal]
  - Pain [Fatal]
  - Muscle injury [Fatal]
